FAERS Safety Report 23470942 (Version 1)
Quarter: 2024Q1

REPORT INFORMATION
  Report Type: Spontaneous
  Country: DE (occurrence: DE)
  Receive Date: 20240202
  Receipt Date: 20240202
  Transmission Date: 20240410
  Serious: Yes (Congenital Anomaly)
  Sender: FDA-Public Use
  Company Number: DE-EMBRYOTOX-202205557

PATIENT
  Age: 1 Day
  Sex: Male
  Weight: 3.17 kg

DRUGS (8)
  1. ZOPICLONE [Suspect]
     Active Substance: ZOPICLONE
     Indication: Depression
     Dosage: TIME INTERVAL: AS NECESSARY: 7.5 [MG/D ]/ 7.5 MG/D AS NEEDED, 2.1. - 10.5. GESTATIONAL WEEK
     Route: 064
  2. VENLAFAXINE [Concomitant]
     Active Substance: VENLAFAXINE HYDROCHLORIDE
     Indication: Depression
     Dosage: 75 [MG/D ]/ 75 MG/D, REDUCED TO 37.5 MG/D TWO WEEKS BEFORE BIRTH , 8.5. - 40. GESTATIONAL WEEK
     Route: 064
     Dates: start: 20220416, end: 20221121
  3. DICLOFENAC [Concomitant]
     Active Substance: DICLOFENAC
     Indication: Pain
     Dosage: GESTATIONAL WEEK 2/3, FOR FEW DAYS , TRIMESTER: 1ST
     Route: 064
  4. DULOXETINE [Suspect]
     Active Substance: DULOXETINE
     Indication: Depression
     Dosage: 90 [MG/D ] , 0. - 8.4. GESTATIONAL WEEK
     Route: 064
     Dates: start: 20220214, end: 20220415
  5. PIPAMPERONE [Suspect]
     Active Substance: PIPAMPERONE
     Indication: Depression
     Dosage: 20 [MG/D ] , 2.1. - 12.6. GESTATIONAL WEEK
     Route: 064
  6. PERTUSSIS VACCINE [Concomitant]
     Active Substance: PERTUSSIS VACCINE
     Indication: Immunisation
     Dosage: 34.1. - 34.1. GESTATIONAL WEEK
     Route: 064
     Dates: start: 20221011, end: 20221011
  7. ortoton [Concomitant]
     Indication: Back pain
     Dosage: GESTATIONAL WEEK 2/3, FOR FEW DAYS , TRIMESTER: 1ST
     Route: 064
  8. INSULIN NOS [Concomitant]
     Active Substance: INSULIN NOS
     Indication: Gestational diabetes
     Dosage: THERAPY STARED AROUND GW 35
     Route: 065

REACTIONS (2)
  - Anterior chamber cleavage syndrome [Not Recovered/Not Resolved]
  - Foetal exposure during pregnancy [Unknown]

NARRATIVE: CASE EVENT DATE: 20220214
